FAERS Safety Report 8047251-5 (Version None)
Quarter: 2012Q1

REPORT INFORMATION
  Report Type: 
  Country: None (occurrence: None)
  Receive Date: 20120116
  Receipt Date: 20120109
  Transmission Date: 20120608
  Serious: Yes (Hospitalization, Other)
  Sender: FDA-Public Use
  Company Number: US-PFIZER INC-2011202643

PATIENT
  Sex: Male
  Weight: 8.9 kg

DRUGS (1)
  1. XYNTHA [Suspect]
     Indication: FACTOR VIII DEFICIENCY
     Dosage: 250 IU, WEEKLY (PROPHYLAXIS)
     Route: 042
     Dates: start: 20110506, end: 20110614

REACTIONS (2)
  - HAEMORRHAGE [None]
  - FACTOR VIII INHIBITION [None]
